FAERS Safety Report 7833896-1 (Version None)
Quarter: 2011Q4

REPORT INFORMATION
  Report Type: 
  Country: None (occurrence: None)
  Receive Date: 20111024
  Receipt Date: 20111019
  Transmission Date: 20120403
  Serious: Yes (Death, Disabling)
  Sender: FDA-Public Use
  Company Number: JP-PFIZER INC-2011214341

PATIENT
  Age: 85 Year
  Sex: Male
  Weight: 50 kg

DRUGS (3)
  1. ZYVOX [Suspect]
     Indication: PNEUMONIA STAPHYLOCOCCAL
     Dosage: 600 MG, 2X/DAY
     Route: 041
     Dates: start: 20110819, end: 20110824
  2. VANCOMYCIN HYDROCHLORIDE [Concomitant]
     Indication: PNEUMONIA STAPHYLOCOCCAL
     Dosage: 0.5 G, 3X/DAY
     Route: 041
     Dates: start: 20110812, end: 20110818
  3. LEVOFLOXACIN [Suspect]
     Indication: INFECTION
     Dosage: 500 MG, 1X/DAY
     Route: 041
     Dates: start: 20110816, end: 20110831

REACTIONS (2)
  - PLATELET COUNT DECREASED [None]
  - DISSEMINATED INTRAVASCULAR COAGULATION [None]
